FAERS Safety Report 4547294-X (Version None)
Quarter: 2005Q1

REPORT INFORMATION
  Report Type: 
  Country: None (occurrence: None)
  Receive Date: 20050105
  Receipt Date: 20041228
  Transmission Date: 20050727
  Serious: Yes (Hospitalization, Other)
  Sender: FDA-Public Use
  Company Number: USA-2004-0018156

PATIENT
  Age: 47 Year
  Sex: Female

DRUGS (2)
  1. SPECTRACEF [Suspect]
     Indication: BRONCHITIS
     Dosage: 200MG, BID
  2. SPECTRACEF [Suspect]
     Indication: SINUSITIS
     Dosage: 200MG, BID

REACTIONS (2)
  - CLOSTRIDIUM COLITIS [None]
  - DEHYDRATION [None]
